FAERS Safety Report 5846974-3 (Version None)
Quarter: 2008Q3

REPORT INFORMATION
  Report Type: 
  Country: None (occurrence: None)
  Receive Date: 20080815
  Receipt Date: 20080806
  Transmission Date: 20090109
  Serious: Yes (Hospitalization, Disabling)
  Sender: FDA-Public Use
  Company Number: GB-PFIZER INC-2008057658

PATIENT
  Sex: Male

DRUGS (1)
  1. CHANTIX [Suspect]
     Indication: SMOKING CESSATION THERAPY
     Route: 048
     Dates: start: 20080303, end: 20080328

REACTIONS (4)
  - ANXIETY [None]
  - DEPRESSED MOOD [None]
  - HEADACHE [None]
  - HYPOAESTHESIA FACIAL [None]
